FAERS Safety Report 12081772 (Version 2)
Quarter: 2016Q1

REPORT INFORMATION
  Report Type: Spontaneous
  Country: JP (occurrence: JP)
  Receive Date: 20160216
  Receipt Date: 20160302
  Transmission Date: 20160526
  Serious: Yes (Hospitalization)
  Sender: FDA-Public Use
  Company Number: JP-B.I. PHARMACEUTICALS,INC./RIDGEFIELD-2015-BI-70762NB

PATIENT
  Age: 49 Year
  Sex: Male
  Weight: 96.2 kg

DRUGS (8)
  1. REBAMIPIDE [Concomitant]
     Active Substance: REBAMIPIDE
     Indication: PAIN
     Route: 048
     Dates: start: 20151024, end: 20151124
  2. FEXOFENADINE HYDROCHLORIDE. [Concomitant]
     Active Substance: FEXOFENADINE HYDROCHLORIDE
     Indication: PAIN
     Dosage: 120 MG
     Route: 048
     Dates: start: 20151101, end: 20151207
  3. PICIBANIL [Suspect]
     Active Substance: OK-432
     Indication: PLEURAL EFFUSION
     Route: 038
     Dates: start: 20151026, end: 20151026
  4. LOXOPROFEN [Concomitant]
     Active Substance: LOXOPROFEN
     Indication: PAIN
     Route: 048
     Dates: start: 20151024, end: 20151124
  5. GILOTRIF [Suspect]
     Active Substance: AFATINIB
     Indication: ADENOCARCINOMA
     Dosage: 40 MG
     Route: 048
     Dates: start: 20151113, end: 20151117
  6. PICIBANIL [Suspect]
     Active Substance: OK-432
     Route: 038
     Dates: start: 20151030, end: 20151030
  7. MINOCYCLINE HYDROCHLORIDE. [Concomitant]
     Active Substance: MINOCYCLINE HYDROCHLORIDE
     Indication: PROPHYLAXIS
     Dosage: 100 MG
     Route: 048
     Dates: start: 20151113, end: 20151116
  8. LANSOPRAZOLE. [Concomitant]
     Active Substance: LANSOPRAZOLE
     Indication: PROPHYLAXIS
     Dosage: 30 MG
     Route: 048
     Dates: start: 20151024, end: 20151210

REACTIONS (1)
  - Drug-induced liver injury [Not Recovered/Not Resolved]

NARRATIVE: CASE EVENT DATE: 20151116
